FAERS Safety Report 5192355-8 (Version None)
Quarter: 2006Q4

REPORT INFORMATION
  Report Type: 
  Country: None (occurrence: None)
  Receive Date: 20061227
  Receipt Date: 20061127
  Transmission Date: 20070319
  Serious: Yes (Death)
  Sender: FDA-Public Use
  Company Number: GB-PFIZER INC-2006145645

PATIENT
  Age: 47 Year
  Sex: Male

DRUGS (1)
  1. SERTRALINE [Suspect]

REACTIONS (4)
  - ANTIDEPRESSANT DRUG LEVEL INCREASED [None]
  - CIRCULATORY COLLAPSE [None]
  - DEATH [None]
  - FALL [None]
